FAERS Safety Report 10533650 (Version 1)
Quarter: 2014Q4

REPORT INFORMATION
  Report Type: Spontaneous
  Country: US (occurrence: None)
  Receive Date: 20141021
  Receipt Date: 20141021
  Transmission Date: 20150529
  Serious: Yes (Other)
  Sender: FDA-Public Use
  Company Number: None

PATIENT
  Age: 34 Year
  Sex: Male
  Weight: 104.33 kg

DRUGS (1)
  1. ZZZQUIL NIGHTTIME SLEEP-AID [Suspect]
     Active Substance: DIPHENHYDRAMINE HYDROCHLORIDE
     Indication: INSOMNIA
     Dosage: 2 PILLS ONCE DAILY TAKEN BY MOUTH
     Route: 048
     Dates: start: 20141020, end: 20141020

REACTIONS (7)
  - Cardiovascular disorder [None]
  - Paranoia [None]
  - Thinking abnormal [None]
  - Asthenia [None]
  - Dizziness [None]
  - Heart rate decreased [None]
  - Insomnia [None]

NARRATIVE: CASE EVENT DATE: 20141020
